FAERS Safety Report 9974612 (Version 1)
Quarter: 2014Q1

REPORT INFORMATION
  Report Type: Report from Study
  Country: US (occurrence: US)
  Receive Date: 20140306
  Receipt Date: 20140306
  Transmission Date: 20141002
  Serious: Yes (Hospitalization)
  Sender: FDA-Public Use
  Company Number: US-ABBVIE-13P-163-1157283-00

PATIENT
  Age: 66 Year
  Sex: Male
  Weight: 62.65 kg

DRUGS (6)
  1. HUMIRA [Suspect]
     Indication: RHEUMATOID ARTHRITIS
     Route: 058
     Dates: start: 2008
  2. METHOTREXATE [Concomitant]
     Indication: RHEUMATOID ARTHRITIS
  3. METFORMIN [Concomitant]
     Indication: DIABETES MELLITUS
  4. UNKNOWN [Concomitant]
     Indication: HYPERTENSION
  5. UNKNOWN [Concomitant]
     Indication: HYPERTENSION
  6. UNKNOWN [Concomitant]
     Indication: HYPERTENSION

REACTIONS (1)
  - Cerebrovascular accident [Recovering/Resolving]
